FAERS Safety Report 5318794-X (Version None)
Quarter: 2007Q2

REPORT INFORMATION
  Report Type: 
  Country: None (occurrence: None)
  Receive Date: 20070504
  Receipt Date: 20070504
  Transmission Date: 20071010
  Serious: Yes (Life-Threatening, Hospitalization)
  Sender: FDA-Public Use
  Company Number: None

PATIENT
  Age: 62 Year
  Sex: Male
  Weight: 93.6 kg

DRUGS (1)
  1. INTERFERON BETA-1A -AVONEX- 30 MCG [Suspect]
     Indication: MULTIPLE SCLEROSIS
     Dosage: 30 MCG WEEKLY IM
     Route: 030

REACTIONS (5)
  - FEELING ABNORMAL [None]
  - GALLBLADDER DISORDER [None]
  - INFLUENZA [None]
  - PAIN [None]
  - PANCREATITIS RELAPSING [None]
